FAERS Safety Report 8317462-X (Version None)
Quarter: 2012Q2

REPORT INFORMATION
  Report Type: 
  Country: None (occurrence: None)
  Receive Date: 20120427
  Receipt Date: 20120417
  Transmission Date: 20120825
  Serious: Yes (Hospitalization, Other)
  Sender: FDA-Public Use
  Company Number: US-ELI_LILLY_AND_COMPANY-US201112004690

PATIENT
  Sex: Female

DRUGS (6)
  1. FORTEO [Suspect]
     Indication: OSTEOPOROSIS
     Dosage: 20 UG, QD
     Route: 058
     Dates: start: 20111117, end: 20111121
  2. CADUET [Concomitant]
     Indication: HYPERTENSION
     Dosage: UNK
  3. FORTEO [Suspect]
     Dosage: 20 UG, QD
     Route: 058
  4. FORTEO [Suspect]
     Dosage: 20 UG, QOD
     Route: 058
     Dates: start: 20111205
  5. FORTEO [Suspect]
     Dosage: 20 UG, QD
     Route: 058
     Dates: end: 20120408
  6. FORTEO [Suspect]
     Dosage: 20 UG, QD
     Route: 058

REACTIONS (11)
  - BLOOD PRESSURE DECREASED [None]
  - PNEUMONIA [None]
  - NERVOUSNESS [None]
  - ADENOCARCINOMA [None]
  - RHINORRHOEA [None]
  - BLOOD PRESSURE FLUCTUATION [None]
  - DYSPNOEA [None]
  - STRESS [None]
  - COUGH [None]
  - INAPPROPRIATE SCHEDULE OF DRUG ADMINISTRATION [None]
  - HAEMOPTYSIS [None]
